FAERS Safety Report 18088549 (Version 3)
Quarter: 2021Q2

REPORT INFORMATION
  Report Type: Spontaneous
  Country: DE (occurrence: DE)
  Receive Date: 20200729
  Receipt Date: 20210405
  Transmission Date: 20210717
  Serious: Yes (Other)
  Sender: FDA-Public Use
  Company Number: NVSC2020DE210440

PATIENT
  Age: 52 Year
  Sex: Male
  Weight: 84 kg

DRUGS (31)
  1. VALSARTAN MYLAN [Suspect]
     Active Substance: VALSARTAN
     Dosage: UNK
     Route: 065
     Dates: start: 20160301
  2. VALSACOR [Suspect]
     Active Substance: VALSARTAN
     Dosage: UNK
     Route: 065
     Dates: start: 20190212
  3. VALSARTAN. [Suspect]
     Active Substance: VALSARTAN
     Indication: HYPERTENSION
     Dosage: UNK MG
     Route: 065
     Dates: start: 20140123
  4. VALSARTAN MYLAN [Suspect]
     Active Substance: VALSARTAN
     Dosage: 160 MG,QD (UNK)
     Route: 065
     Dates: start: 20170424
  5. VALSACOR [Suspect]
     Active Substance: VALSARTAN
     Dosage: UNK
     Route: 065
     Dates: start: 20191030
  6. VALSARTAN. [Suspect]
     Active Substance: VALSARTAN
     Dosage: UNK
     Route: 065
     Dates: start: 20180209
  7. VALSARTAN. [Suspect]
     Active Substance: VALSARTAN
     Dosage: UNK
     Route: 065
     Dates: start: 20200127
  8. VALSARTAN MYLAN [Suspect]
     Active Substance: VALSARTAN
     Dosage: UNK
     Route: 065
     Dates: start: 20181106
  9. VALSACOR [Suspect]
     Active Substance: VALSARTAN
     Indication: PRODUCT USED FOR UNKNOWN INDICATION
     Dosage: UNK
     Route: 065
     Dates: start: 20170717
  10. VALSACOR [Suspect]
     Active Substance: VALSARTAN
     Dosage: UNK
     Route: 065
     Dates: start: 20200127
  11. VALSARTAN HEUMANN [Suspect]
     Active Substance: VALSARTAN
     Dosage: UNK
     Route: 065
     Dates: start: 20180209
  12. VALSARTAN HEXAL [Suspect]
     Active Substance: VALSARTAN
     Indication: PRODUCT USED FOR UNKNOWN INDICATION
     Dosage: UNK
     Route: 065
     Dates: start: 20140123
  13. VALSARTAN HEXAL [Suspect]
     Active Substance: VALSARTAN
     Dosage: UNK
     Route: 065
     Dates: start: 20140918
  14. VALSARTAN. [Suspect]
     Active Substance: VALSARTAN
     Dosage: UNK (UNK)
     Route: 065
     Dates: start: 20190606
  15. VALSARTAN MYLAN [Suspect]
     Active Substance: VALSARTAN
     Indication: HYPERTENSION
     Dosage: 160 MG, QD
     Route: 065
     Dates: start: 2012, end: 2018
  16. VALSARTAN MYLAN [Suspect]
     Active Substance: VALSARTAN
     Dosage: UNK
     Route: 065
     Dates: start: 20140605
  17. VALSARTAN MYLAN [Suspect]
     Active Substance: VALSARTAN
     Dosage: UNK
     Route: 065
     Dates: start: 20141218
  18. VALSARTAN MYLAN [Suspect]
     Active Substance: VALSARTAN
     Dosage: UNK
     Route: 065
     Dates: start: 20150414
  19. VALSARTAN MYLAN [Suspect]
     Active Substance: VALSARTAN
     Dosage: UNK
     Route: 065
     Dates: start: 20151009
  20. VALSARTAN MYLAN [Suspect]
     Active Substance: VALSARTAN
     Dosage: UNK
     Route: 065
     Dates: start: 20170424
  21. VALSARTAN MYLAN [Suspect]
     Active Substance: VALSARTAN
     Dosage: UNK
     Route: 065
     Dates: start: 20180608
  22. VALSACOR [Suspect]
     Active Substance: VALSARTAN
     Dosage: UNK
     Route: 065
     Dates: start: 20190606
  23. VALSARTAN. [Suspect]
     Active Substance: VALSARTAN
     Dosage: UNK
     Route: 065
     Dates: start: 20150706
  24. VALSARTAN. [Suspect]
     Active Substance: VALSARTAN
     Dosage: UNK
     Route: 065
     Dates: start: 20190212
  25. VALSARTAN. [Suspect]
     Active Substance: VALSARTAN
     Dosage: UNK
     Route: 065
     Dates: start: 20191030
  26. VALSARTAN. [Suspect]
     Active Substance: VALSARTAN
     Dosage: UNK (UNK)
     Route: 065
     Dates: start: 20140918
  27. VALSARTAN. [Suspect]
     Active Substance: VALSARTAN
     Dosage: UNK (UNK)
     Route: 065
     Dates: start: 20180209
  28. VALSARTAN. [Suspect]
     Active Substance: VALSARTAN
     Dosage: UNK
     Route: 065
     Dates: start: 20161205
  29. VALSARTAN. [Suspect]
     Active Substance: VALSARTAN
     Dosage: 160 MG
     Route: 065
     Dates: start: 20170717
  30. VALSARTAN. [Suspect]
     Active Substance: VALSARTAN
     Dosage: UNK
     Route: 065
     Dates: start: 20171204
  31. VALSARTAN HEUMANN [Suspect]
     Active Substance: VALSARTAN
     Indication: PRODUCT USED FOR UNKNOWN INDICATION
     Dosage: UNK
     Route: 065
     Dates: start: 20161205

REACTIONS (6)
  - Product quality issue [Unknown]
  - Poor quality product administered [Unknown]
  - Fear of disease [Unknown]
  - Restlessness [Unknown]
  - Mental impairment [Unknown]
  - Impaired quality of life [Unknown]

NARRATIVE: CASE EVENT DATE: 201702
